FAERS Safety Report 13834313 (Version 2)
Quarter: 2017Q3

REPORT INFORMATION
  Report Type: Spontaneous
  Country: US (occurrence: US)
  Receive Date: 20170804
  Receipt Date: 20170817
  Transmission Date: 20171127
  Serious: Yes (Other)
  Sender: FDA-Public Use
  Company Number: US-AMGEN-USASP2017114734

PATIENT
  Age: 51 Year
  Sex: Female

DRUGS (3)
  1. ENBREL [Suspect]
     Active Substance: ETANERCEPT
     Indication: RHEUMATOID ARTHRITIS
     Dosage: 50 MG, QWK
     Route: 065
  2. TOPAMAX [Suspect]
     Active Substance: TOPIRAMATE
     Indication: PRODUCT USED FOR UNKNOWN INDICATION
     Dosage: UNK
     Route: 065
     Dates: start: 201705, end: 201705
  3. ENBREL [Suspect]
     Active Substance: ETANERCEPT
     Indication: ANKYLOSING SPONDYLITIS
     Dosage: UNK UNK, QWK
     Route: 065
     Dates: start: 2012

REACTIONS (14)
  - Muscle twitching [Recovered/Resolved]
  - Hot flush [Not Recovered/Not Resolved]
  - Sepsis [Unknown]
  - Hypersensitivity [Unknown]
  - Balance disorder [Recovered/Resolved]
  - Injection site erythema [Recovered/Resolved]
  - Multiple sclerosis [Unknown]
  - Injection site swelling [Recovered/Resolved]
  - Occipital neuralgia [Unknown]
  - Night blindness [Unknown]
  - Discomfort [Unknown]
  - Malaise [Unknown]
  - Seizure [Unknown]
  - Injection site rash [Recovered/Resolved]

NARRATIVE: CASE EVENT DATE: 2012
